FAERS Safety Report 24856621 (Version 9)
Quarter: 2025Q2

REPORT INFORMATION
  Report Type: Report from Study
  Country: RU (occurrence: RU)
  Receive Date: 20250117
  Receipt Date: 20250403
  Transmission Date: 20250716
  Serious: Yes (Other)
  Sender: NOVARTIS
  Company Number: RU-002147023-NVSC2025RU005734

PATIENT
  Age: 0 Year
  Sex: Male
  Weight: 6.2 kg

DRUGS (5)
  1. ZOLGENSMA [Suspect]
     Active Substance: ONASEMNOGENE ABEPARVOVEC-XIOI
     Indication: Spinal muscular atrophy
     Route: 041
     Dates: start: 20241221, end: 20241221
  2. PREDNISOLONE [Concomitant]
     Active Substance: PREDNISOLONE
     Indication: Product used for unknown indication
     Dosage: 1.25 DOSAGE FORM (1 TABLET + 1/4 TABLET), QD (5 MG TABLETS) IN MORNING AFTER MEAL (TABLET)
     Route: 065
     Dates: start: 20241220
  3. ESOMEPRAZOLE [Concomitant]
     Active Substance: ESOMEPRAZOLE
     Indication: Product used for unknown indication
     Dosage: 5 MG, QD BEFORE BED
     Route: 065
     Dates: start: 20241220
  4. ESOMEPRAZOLE [Concomitant]
     Active Substance: ESOMEPRAZOLE
     Dosage: 1/2 SACHET (10 MG/SACHET), QD
     Route: 065
  5. CHOLECALCIFEROL [Concomitant]
     Active Substance: CHOLECALCIFEROL
     Indication: Product used for unknown indication
     Dosage: 2 DRP, QD (FORMULATION 500 IU/ DROP)
     Route: 065
     Dates: start: 20241220

REACTIONS (3)
  - Vomiting [Recovered/Resolved]
  - Rhinorrhoea [Recovered/Resolved]
  - Blood test abnormal [Recovering/Resolving]

NARRATIVE: CASE EVENT DATE: 20241221
